FAERS Safety Report 5079800-3 (Version None)
Quarter: 2006Q3

REPORT INFORMATION
  Report Type: 
  Country: None (occurrence: None)
  Receive Date: 20060808
  Receipt Date: 20060728
  Transmission Date: 20061208
  Serious: Yes (Hospitalization, Other)
  Sender: FDA-Public Use
  Company Number: HQWYE548225MAY06

PATIENT
  Age: 58 Year
  Sex: Female
  Weight: 62.65 kg

DRUGS (1)
  1. CYCLOSPORINE [Suspect]
     Indication: PROPHYLAXIS AGAINST TRANSPLANT REJECTION
     Dosage: 200 MG 2X PER 1 DAY
     Dates: start: 20060523, end: 20060617

REACTIONS (8)
  - ASPIRATION [None]
  - LUNG INFILTRATION [None]
  - PLEURAL EFFUSION [None]
  - PNEUMONIA [None]
  - POST PROCEDURAL COMPLICATION [None]
  - PULMONARY CONGESTION [None]
  - PULMONARY OEDEMA [None]
  - WHEEZING [None]
